FAERS Safety Report 5716473-8 (Version None)
Quarter: 2008Q2

REPORT INFORMATION
  Report Type: 
  Country: None (occurrence: None)
  Receive Date: 20080424
  Receipt Date: 20080414
  Transmission Date: 20081010
  Serious: Yes (Hospitalization)
  Sender: FDA-Public Use
  Company Number: NL-ABBOTT-08P-114-0447013-00

PATIENT
  Age: 16 Year
  Sex: Female

DRUGS (5)
  1. DEPAKINE CHRONOSPHERE [Suspect]
     Indication: EPILEPSY
     Route: 048
     Dates: start: 20071127
  2. DEPAKINE CHRONOSPHERE [Suspect]
     Route: 048
  3. DEPAKINE CHRONOSPHERE [Suspect]
     Route: 048
     Dates: start: 20071127, end: 20071127
  4. DEPAKINE CHRONOSPHERE [Suspect]
     Dosage: LIQUID
  5. RISPERIDONE [Concomitant]
     Indication: AUTISM
     Route: 048

REACTIONS (10)
  - ABNORMAL BEHAVIOUR [None]
  - AGGRESSION [None]
  - ANXIETY [None]
  - DECREASED APPETITE [None]
  - DIARRHOEA [None]
  - HYPERHIDROSIS [None]
  - INSOMNIA [None]
  - NAUSEA [None]
  - RESTLESSNESS [None]
  - VOMITING [None]
